FAERS Safety Report 8089629-X (Version None)
Quarter: 2012Q1

REPORT INFORMATION
  Report Type: 
  Country: None (occurrence: None)
  Receive Date: 20120128
  Receipt Date: 20110711
  Transmission Date: 20120608
  Serious: No
  Sender: FDA-Public Use
  Company Number: US-ABBOTT-11P-163-0837918-00

PATIENT
  Age: 35 Year

DRUGS (7)
  1. IBUPROFEN [Concomitant]
     Indication: PAIN
     Dosage: AS NEEDED
  2. PROAIR HFA [Concomitant]
     Indication: INHALATION THERAPY
     Dosage: AS NEEDED
  3. HUMIRA [Suspect]
     Indication: SPONDYLOARTHROPATHY
     Dates: start: 20110628
  4. PREDNISONE TAB [Concomitant]
     Indication: SPONDYLOARTHROPATHY
  5. SULFASALAZINE [Concomitant]
     Indication: SPONDYLOARTHROPATHY
  6. FLOVENT [Concomitant]
     Indication: ASTHMA
  7. CLONAZEPAM [Concomitant]
     Indication: ANXIETY

REACTIONS (2)
  - CONTUSION [None]
  - TONGUE HAEMORRHAGE [None]
